FAERS Safety Report 5824004-7 (Version None)
Quarter: 2008Q3

REPORT INFORMATION
  Report Type: 
  Country: None (occurrence: None)
  Receive Date: 20080728
  Receipt Date: 20080626
  Transmission Date: 20090109
  Serious: No
  Sender: FDA-Public Use
  Company Number: US-JNJFOC-20080606871

PATIENT
  Age: 52 Year
  Sex: Female
  Weight: 94.35 kg

DRUGS (3)
  1. INVEGA [Suspect]
     Route: 048
  2. INVEGA [Suspect]
     Indication: SCHIZOPHRENIA
     Route: 048
  3. CELEXA [Concomitant]
     Indication: DEPRESSION

REACTIONS (1)
  - FEELING ABNORMAL [None]
